FAERS Safety Report 7291492-1 (Version None)
Quarter: 2011Q1

REPORT INFORMATION
  Report Type: 
  Country: None (occurrence: None)
  Receive Date: 20110202
  Receipt Date: 20110118
  Transmission Date: 20110831
  Serious: Yes (Hospitalization)
  Sender: FDA-Public Use
  Company Number: PHHY2010JP39511

PATIENT
  Age: 81 Year
  Sex: Male

DRUGS (13)
  1. BETAMETHASONE [Concomitant]
  2. SOLANTAL [Concomitant]
  3. LUCENTIS [Suspect]
     Indication: MACULAR DEGENERATION
     Dosage: 0.05 ML DAILY EY
     Dates: start: 20100521, end: 20100521
  4. FK [Concomitant]
  5. MOXIFLOXACIN HYDROCHLORIDE [Concomitant]
  6. VISUDYNE [Suspect]
     Indication: MACULAR DEGENERATION
     Dates: start: 20041001, end: 20091101
  7. LUCENTIS [Suspect]
     Indication: MACULAR DEGENERATION
     Dosage: 0.05 ML DAILY EY
     Dates: start: 20091204, end: 20091204
  8. HYALEIN [Concomitant]
  9. LUCENTIS [Suspect]
     Indication: MACULAR DEGENERATION
     Dosage: 0.05 ML DAILY EY
     Dates: start: 20100108, end: 20100108
  10. MEIACT [Concomitant]
  11. LUCENTIS [Suspect]
     Indication: MACULAR DEGENERATION
     Dosage: 0.05 ML DAILY EY
     Dates: start: 20091106, end: 20091106
  12. OFLOXACIN [Concomitant]
  13. VISUDYNE [Suspect]
     Indication: MACULAR DEGENERATION
     Dates: start: 20100522, end: 20100522

REACTIONS (4)
  - CEREBELLAR INFARCTION [None]
  - VISUAL ACUITY REDUCED [None]
  - INCONTINENCE [None]
  - LACUNAR INFARCTION [None]
